FAERS Safety Report 6390719-8 (Version None)
Quarter: 2009Q4

REPORT INFORMATION
  Report Type: 
  Country: None (occurrence: None)
  Receive Date: 20091006
  Receipt Date: 20090923
  Transmission Date: 20100525
  Serious: Yes (Other)
  Sender: FDA-Public Use
  Company Number: PHHY2009FI41260

PATIENT
  Sex: Male

DRUGS (1)
  1. FEMARA [Suspect]
     Indication: BODY HEIGHT BELOW NORMAL
     Dosage: 2.5 MG, ONE TABLET A DAY
     Route: 048
     Dates: start: 20011201, end: 20031201

REACTIONS (1)
  - SPINAL DISORDER [None]
